FAERS Safety Report 7679135-6 (Version None)
Quarter: 2011Q3

REPORT INFORMATION
  Report Type: 
  Country: None (occurrence: None)
  Receive Date: 20110812
  Receipt Date: 20110729
  Transmission Date: 20111222
  Serious: Yes (Hospitalization, Other)
  Sender: FDA-Public Use
  Company Number: US-ELI_LILLY_AND_COMPANY-US201101007151

PATIENT
  Sex: Female

DRUGS (12)
  1. OXYCONTIN [Concomitant]
     Indication: PAIN
     Dosage: UNK, UNKNOWN
     Route: 065
  2. AMPICILLIN SODIUM [Concomitant]
     Dosage: UNK, UNKNOWN
     Route: 065
     Dates: start: 20100920
  3. FORTEO [Suspect]
     Dosage: 20 UG, QD
     Route: 065
  4. FORTEO [Suspect]
     Dosage: 20 UG, DAILY (1/D)
     Route: 065
  5. CALCIUM CARBONATE [Concomitant]
     Dosage: UNK, BID
  6. FORTEO [Suspect]
     Indication: OSTEOPOROSIS
     Dosage: 20 UG, DAILY (1/D)
     Route: 065
     Dates: start: 20110110
  7. VITAMIN D [Concomitant]
  8. VITAMIN D [Concomitant]
  9. CYMBALTA [Concomitant]
     Dosage: UNK, UNKNOWN
     Route: 065
  10. ANALGESICS [Concomitant]
  11. VITAMIN B6 [Concomitant]
  12. OXYCODONE HCL [Concomitant]
     Dosage: UNK, AS NEEDED
     Route: 065

REACTIONS (13)
  - DEVICE FAILURE [None]
  - MOBILITY DECREASED [None]
  - ACCIDENTAL OVERDOSE [None]
  - SPINAL ROD INSERTION [None]
  - PAIN IN EXTREMITY [None]
  - ANAEMIA [None]
  - HYPOAESTHESIA [None]
  - DEVICE RELATED INFECTION [None]
  - BACK PAIN [None]
  - FROSTBITE [None]
  - STRESS [None]
  - BONE DISORDER [None]
  - OPERATIVE HAEMORRHAGE [None]
